FAERS Safety Report 8313320-5 (Version None)
Quarter: 2012Q2

REPORT INFORMATION
  Report Type: 
  Country: None (occurrence: None)
  Receive Date: 20120426
  Receipt Date: 20120416
  Transmission Date: 20120825
  Serious: Yes (Other)
  Sender: FDA-Public Use
  Company Number: PHHY2012BR033423

PATIENT
  Sex: Female

DRUGS (1)
  1. EXELON [Suspect]
     Indication: MEMORY IMPAIRMENT
     Dosage: 1.5 MG, UNK

REACTIONS (15)
  - NAUSEA [None]
  - MEMORY IMPAIRMENT [None]
  - OSTEOARTHRITIS [None]
  - HIATUS HERNIA [None]
  - COUGH [None]
  - MALAISE [None]
  - HEADACHE [None]
  - VOMITING [None]
  - GASTROOESOPHAGEAL REFLUX DISEASE [None]
  - CAROTID ARTERY STENOSIS [None]
  - DYSSTASIA [None]
  - ARRHYTHMIA [None]
  - HYPOTHYROIDISM [None]
  - TREMOR [None]
  - SOMNOLENCE [None]
